FAERS Safety Report 22125982 (Version 2)
Quarter: 2023Q1

REPORT INFORMATION
  Report Type: Spontaneous
  Country: US (occurrence: US)
  Receive Date: 20230322
  Receipt Date: 20230322
  Transmission Date: 20230418
  Serious: No
  Sender: FDA-Public Use
  Company Number: US-ALLERGAN-2216268US

PATIENT
  Age: 56 Year
  Sex: Female
  Weight: 56.699 kg

DRUGS (2)
  1. LATISSE [Suspect]
     Active Substance: BIMATOPROST
     Indication: Growth of eyelashes
     Dosage: UNK
     Route: 061
     Dates: end: 202203
  2. LATISSE [Suspect]
     Active Substance: BIMATOPROST
     Indication: Growth of eyelashes
     Dosage: UNK
     Route: 061
     Dates: start: 202204, end: 202205

REACTIONS (8)
  - COVID-19 [Recovered/Resolved]
  - Cough [Recovered/Resolved]
  - Nasopharyngitis [Recovered/Resolved]
  - Pyrexia [Recovered/Resolved]
  - Nasal congestion [Recovered/Resolved]
  - Inappropriate schedule of product administration [Unknown]
  - Headache [Recovered/Resolved]
  - Hordeolum [Not Recovered/Not Resolved]

NARRATIVE: CASE EVENT DATE: 20210801
